FAERS Safety Report 20017935 (Version 3)
Quarter: 2022Q1

REPORT INFORMATION
  Report Type: Report from Study
  Country: US (occurrence: None)
  Receive Date: 20211101
  Receipt Date: 20220207
  Transmission Date: 20220423
  Serious: Yes (Hospitalization)
  Sender: FDA-Public Use
  Company Number: US-ROCHE-2942506

PATIENT
  Age: 63 Year
  Sex: Male
  Weight: 96.384 kg

DRUGS (6)
  1. ATEZOLIZUMAB [Suspect]
     Active Substance: ATEZOLIZUMAB
     Indication: Prostate cancer metastatic
     Dosage: MOST RECENT DOSE PRIOR TO SAE- 30/SEP/2021, 60 MINUTES EVERY 3 WEEKS?RECEIVED SUBSEQUENT DOSE ON 20/
     Route: 041
     Dates: start: 20210416
  2. ABIRATERONE [Suspect]
     Active Substance: ABIRATERONE
     Indication: Prostate cancer metastatic
     Dosage: MOST RECENT DOSE PRIOR TO SAE- 19/OCT/2021
     Route: 065
     Dates: start: 20210507
  3. LUPRON [Suspect]
     Active Substance: LEUPROLIDE ACETATE
     Indication: Prostate cancer metastatic
     Dosage: MOST RECENT DOSE PRIOR TO SAE- 30/SEP/2021
     Route: 030
     Dates: start: 20210526
  4. PREDNISONE [Concomitant]
     Active Substance: PREDNISONE
  5. ZOSYN [Concomitant]
     Active Substance: PIPERACILLIN SODIUM\TAZOBACTAM SODIUM
     Dosage: 3.375G IV Q8H UNTIL DISCHARGE
     Route: 042
  6. ERTAPENEM [Concomitant]
     Active Substance: ERTAPENEM
     Dosage: HOME IV ERAPANEM 1G DAILY X14DAYS
     Route: 042

REACTIONS (1)
  - Large intestine perforation [Recovered/Resolved]

NARRATIVE: CASE EVENT DATE: 20211020
